FAERS Safety Report 23096946 (Version 1)
Quarter: 2023Q4

REPORT INFORMATION
  Report Type: Report from Study
  Country: EG (occurrence: EG)
  Receive Date: 20231023
  Receipt Date: 20231023
  Transmission Date: 20240109
  Serious: Yes (Other)
  Sender: FDA-Public Use
  Company Number: EG-002147023-NVSC2021EG292992

PATIENT
  Age: 10 Year
  Sex: Male

DRUGS (7)
  1. OMNITROPE [Suspect]
     Active Substance: SOMATROPIN
     Indication: Growth hormone deficiency
     Dosage: 0.9 MG, QD
     Route: 058
     Dates: start: 20211206
  2. OMNITROPE [Suspect]
     Active Substance: SOMATROPIN
     Dosage: 1 MG, QD
     Route: 058
     Dates: start: 20211221, end: 2023
  3. SOMATROPIN [Suspect]
     Active Substance: SOMATROPIN
     Indication: Growth hormone deficiency
     Dosage: 1 AMPOULE / DAY
     Route: 058
     Dates: start: 202304, end: 202306
  4. CALDIN ZINC [Concomitant]
     Indication: Malnutrition
     Dosage: 5 ML/DAY
     Route: 048
     Dates: start: 20211206, end: 202203
  5. VIDROP [Concomitant]
     Indication: Malnutrition
     Dosage: 1 FILLED DROPPER, QD
     Route: 048
     Dates: start: 20211206, end: 202203
  6. VITAMOUNT [Concomitant]
     Dosage: 5 ML/DAY
     Route: 048
     Dates: start: 20211206, end: 202203
  7. VITAMOUNT [Concomitant]
     Indication: Malnutrition
     Dosage: 5 ML, QD
     Route: 048
     Dates: start: 20211206

REACTIONS (4)
  - Growth failure [Not Recovered/Not Resolved]
  - Product temperature excursion issue [Not Recovered/Not Resolved]
  - Product use issue [Not Recovered/Not Resolved]
  - Product availability issue [Not Recovered/Not Resolved]

NARRATIVE: CASE EVENT DATE: 20211206
